FAERS Safety Report 15715111 (Version 2)
Quarter: 2018Q4

REPORT INFORMATION
  Report Type: Spontaneous
  Country: JP (occurrence: JP)
  Receive Date: 20181212
  Receipt Date: 20181231
  Transmission Date: 20190205
  Serious: Yes (Death, Hospitalization, Other)
  Sender: FDA-Public Use
  Company Number: JP-BRISTOL-MYERS SQUIBB COMPANY-BMS-2018-114724

PATIENT
  Age: 61 Year
  Sex: Male

DRUGS (10)
  1. AMLODIPINE [Suspect]
     Active Substance: AMLODIPINE BESYLATE
     Indication: PRODUCT USED FOR UNKNOWN INDICATION
     Route: 048
  2. EQUA [Concomitant]
     Active Substance: VILDAGLIPTIN
     Indication: PRODUCT USED FOR UNKNOWN INDICATION
     Dosage: UNK
     Route: 065
  3. MIGLITOL. [Concomitant]
     Active Substance: MIGLITOL
     Indication: PRODUCT USED FOR UNKNOWN INDICATION
     Dosage: UNK
     Route: 065
  4. GLIMEPIRIDE. [Concomitant]
     Active Substance: GLIMEPIRIDE
     Indication: PRODUCT USED FOR UNKNOWN INDICATION
     Dosage: UNK
     Route: 065
  5. BEZAFIBRATE [Concomitant]
     Active Substance: BEZAFIBRATE
     Indication: PRODUCT USED FOR UNKNOWN INDICATION
     Dosage: UNK
     Route: 065
  6. SITAGLIPTIN PHOSPHATE MONOHYDRATE [Concomitant]
     Active Substance: SITAGLIPTIN PHOSPHATE
     Indication: PRODUCT USED FOR UNKNOWN INDICATION
     Dosage: UNK
     Route: 065
  7. INSULIN [Concomitant]
     Active Substance: INSULIN NOS
     Indication: PRODUCT USED FOR UNKNOWN INDICATION
     Dosage: UNK
     Route: 065
  8. METGLUCO [Suspect]
     Active Substance: METFORMIN HYDROCHLORIDE
     Indication: TYPE 2 DIABETES MELLITUS
     Route: 048
  9. VALSARTAN. [Concomitant]
     Active Substance: VALSARTAN
     Indication: PRODUCT USED FOR UNKNOWN INDICATION
     Dosage: UNK
     Route: 065
  10. CLOPIDOGREL BISULFATE. [Concomitant]
     Active Substance: CLOPIDOGREL BISULFATE
     Indication: PRODUCT USED FOR UNKNOWN INDICATION
     Dosage: UNK
     Route: 065

REACTIONS (5)
  - Decreased appetite [Fatal]
  - Hypoxia [Fatal]
  - Tachycardia [Fatal]
  - Pulmonary tumour thrombotic microangiopathy [Fatal]
  - Dyspnoea [Fatal]
